FAERS Safety Report 22814363 (Version 2)
Quarter: 2023Q4

REPORT INFORMATION
  Report Type: Spontaneous
  Country: US (occurrence: US)
  Receive Date: 20230811
  Receipt Date: 20231222
  Transmission Date: 20240110
  Serious: Yes (Other)
  Sender: FDA-Public Use
  Company Number: US-PFM-2023-04462

PATIENT
  Sex: Male
  Weight: 6.86 kg

DRUGS (3)
  1. HEMANGEOL [Suspect]
     Active Substance: PROPRANOLOL HYDROCHLORIDE
     Indication: Haemangioma
     Dosage: 0.3 ML BY MOUTH 2 TIMES DAILY FOR AT LEAST 2 WEEKS
     Route: 048
     Dates: start: 20230804
  2. HEMANGEOL [Suspect]
     Active Substance: PROPRANOLOL HYDROCHLORIDE
     Dosage: 0.6 ML BY MOUTH 2 TIMES DAILY
     Route: 048
  3. HEMANGEOL [Suspect]
     Active Substance: PROPRANOLOL HYDROCHLORIDE
     Dosage: 2.8 ML, UNK
     Route: 065

REACTIONS (3)
  - Ulcerated haemangioma [Unknown]
  - Diarrhoea [Unknown]
  - Decreased appetite [Recovering/Resolving]
